FAERS Safety Report 23241488 (Version 1)
Quarter: 2023Q4

REPORT INFORMATION
  Report Type: Spontaneous
  Country: US (occurrence: US)
  Receive Date: 20231129
  Receipt Date: 20231129
  Transmission Date: 20240110
  Serious: Yes (Hospitalization)
  Sender: FDA-Public Use
  Company Number: US-MYLANLABS-2023M1124085

PATIENT
  Age: 60 Year
  Sex: Female

DRUGS (1)
  1. HYDROCORTISONE [Suspect]
     Active Substance: HYDROCORTISONE
     Indication: Secondary adrenocortical insufficiency
     Dosage: 100 MILLIGRAM, Q8H
     Route: 042

REACTIONS (2)
  - Diabetes insipidus [Recovered/Resolved]
  - Unmasking of previously unidentified disease [Recovered/Resolved]
